FAERS Safety Report 8617712-6 (Version None)
Quarter: 2012Q3

REPORT INFORMATION
  Report Type: 
  Country: None (occurrence: None)
  Receive Date: 20120824
  Receipt Date: 20120117
  Transmission Date: 20120928
  Serious: No
  Sender: FDA-Public Use
  Company Number: US-ASTRAZENECA-2012SE03693

PATIENT
  Age: 53 Year
  Sex: Male

DRUGS (1)
  1. SYMBICORT [Suspect]
     Dosage: 160/4.5 MCG, DAILY
     Route: 055

REACTIONS (6)
  - SPUTUM ABNORMAL [None]
  - PULMONARY FUNCTION TEST DECREASED [None]
  - FEELING ABNORMAL [None]
  - INFECTION [None]
  - PNEUMONIA [None]
  - BONE PAIN [None]
